FAERS Safety Report 5745456-7 (Version None)
Quarter: 2008Q2

REPORT INFORMATION
  Report Type: 
  Country: None (occurrence: None)
  Receive Date: 20080521
  Receipt Date: 20080512
  Transmission Date: 20081010
  Serious: Yes (Life-Threatening)
  Sender: FDA-Public Use
  Company Number: GB-ASTRAZENECA-2007GB01124

PATIENT
  Age: 71 Year
  Sex: Female
  Weight: 88 kg

DRUGS (4)
  1. ROSUVASTATIN [Suspect]
     Indication: HYPERCHOLESTEROLAEMIA
     Dosage: 10 MG
     Route: 048
     Dates: start: 20050501, end: 20070510
  2. BENDROFLUAZIDE [Suspect]
     Indication: HYPERTENSION
     Dosage: 2.5 MG
     Route: 048
     Dates: start: 20050301
  3. INFLUENZA VIRUS [Concomitant]
     Dosage: 1 DF
     Dates: start: 20061021, end: 20061021
  4. TRIMETHOPRIM [Concomitant]

REACTIONS (2)
  - CONTUSION [None]
  - IDIOPATHIC THROMBOCYTOPENIC PURPURA [None]
